FAERS Safety Report 7670185-2 (Version None)
Quarter: 2011Q3

REPORT INFORMATION
  Report Type: 
  Country: None (occurrence: None)
  Receive Date: 20110808
  Receipt Date: 20110803
  Transmission Date: 20111222
  Serious: Yes (Hospitalization)
  Sender: FDA-Public Use
  Company Number: US-GILEAD-2011-0042010

PATIENT
  Sex: Male

DRUGS (3)
  1. LETAIRIS [Suspect]
     Indication: PULMONARY HYPERTENSION
     Route: 048
     Dates: start: 20110711
  2. LETAIRIS [Suspect]
     Indication: HYPOXIA
  3. LETAIRIS [Suspect]
     Indication: LUNG DISORDER

REACTIONS (6)
  - NAUSEA [None]
  - INSOMNIA [None]
  - DECREASED APPETITE [None]
  - HEADACHE [None]
  - DYSPNOEA [None]
  - VOMITING [None]
